FAERS Safety Report 10262612 (Version 1)
Quarter: 2014Q2

REPORT INFORMATION
  Report Type: Spontaneous
  Country: US (occurrence: US)
  Receive Date: 20140626
  Receipt Date: 20140626
  Transmission Date: 20141212
  Serious: Yes (Other)
  Sender: FDA-Public Use
  Company Number: US-TEVA-490137USA

PATIENT
  Sex: Female

DRUGS (2)
  1. COPAXONE 40 MG [Suspect]
     Indication: MULTIPLE SCLEROSIS
  2. GLATIRAMER ACETATE [Suspect]
     Indication: MULTIPLE SCLEROSIS

REACTIONS (2)
  - Multiple sclerosis relapse [Unknown]
  - Asthenia [Unknown]
